FAERS Safety Report 19765585 (Version 2)
Quarter: 2022Q2

REPORT INFORMATION
  Report Type: Report from Study
  Country: US (occurrence: US)
  Receive Date: 20210831
  Receipt Date: 20220401
  Transmission Date: 20220721
  Serious: Yes (Hospitalization, Other)
  Sender: FDA-Public Use
  Company Number: US-INSMED, INC.-2021-08861-US

PATIENT
  Sex: Female

DRUGS (3)
  1. ARIKAYCE [Suspect]
     Active Substance: AMIKACIN
     Indication: Mycobacterium avium complex infection
     Dosage: 590 MILLIGRAM, QD
     Route: 055
     Dates: start: 202106, end: 20210803
  2. ARIKAYCE [Suspect]
     Active Substance: AMIKACIN
     Indication: Bronchiectasis
     Dosage: 590 UNK
     Route: 055
  3. OXYGEN [Concomitant]
     Active Substance: OXYGEN
     Indication: Product used for unknown indication
     Dosage: UNK, PRN

REACTIONS (10)
  - Hospitalisation [Unknown]
  - Pneumonia [Recovered/Resolved]
  - Pneumonia [Not Recovered/Not Resolved]
  - Faeces soft [Not Recovered/Not Resolved]
  - Throat irritation [Unknown]
  - Cough [Not Recovered/Not Resolved]
  - Dysphonia [Not Recovered/Not Resolved]
  - Diarrhoea [Not Recovered/Not Resolved]
  - Malaise [Unknown]
  - Dyspnoea [Not Recovered/Not Resolved]

NARRATIVE: CASE EVENT DATE: 20210101
